FAERS Safety Report 5427654-5 (Version None)
Quarter: 2007Q3

REPORT INFORMATION
  Report Type: 
  Country: None (occurrence: None)
  Receive Date: 20070823
  Receipt Date: 20070807
  Transmission Date: 20080115
  Serious: Yes (Life-Threatening, Hospitalization)
  Sender: FDA-Public Use
  Company Number: DSA_29956_2007

PATIENT
  Sex: Female

DRUGS (5)
  1. LORAZEPAM [Suspect]
     Dosage: 20 MG 1X  NOT PRESCRIBED AMOUNT, ORAL
     Route: 047
     Dates: start: 20070519, end: 20070519
  2. DIPIPERON (DIPIPERON - PIPAMPERONE) 40 MG (NOT SPECIFIED) [Suspect]
     Dosage: 200 MG 1X NOT PRESCRIBED AMOUNT, ORAL
     Route: 048
     Dates: start: 20070519, end: 20070519
  3. CITALOPRAM [Concomitant]
  4. SEROQUEL [Concomitant]
  5. PANTOPRAZOLE SODIUM [Concomitant]

REACTIONS (10)
  - ASTHENIA [None]
  - DISEASE RECURRENCE [None]
  - DRUG ABUSER [None]
  - FATIGUE [None]
  - HALLUCINATION [None]
  - MULTIPLE DRUG OVERDOSE INTENTIONAL [None]
  - NAUSEA [None]
  - SPEECH DISORDER [None]
  - SUICIDE ATTEMPT [None]
  - VOMITING [None]
